FAERS Safety Report 7756303-6 (Version None)
Quarter: 2011Q3

REPORT INFORMATION
  Report Type: 
  Country: None (occurrence: None)
  Receive Date: 20110916
  Receipt Date: 20110901
  Transmission Date: 20111222
  Serious: Yes (Hospitalization)
  Sender: FDA-Public Use
  Company Number: BE-JNJFOC-20110902210

PATIENT
  Age: 26 Year
  Sex: Male
  Weight: 87 kg

DRUGS (3)
  1. DARUNAVIR ETHANOLATE [Suspect]
     Indication: HIV INFECTION
     Route: 048
     Dates: start: 20110118
  2. RITONAVIR [Suspect]
     Indication: HIV INFECTION
     Route: 048
     Dates: start: 20110118
  3. EMTRICITABINE/TENOFOVIR DISOPROXIL FUMARATE [Suspect]
     Indication: HIV INFECTION
     Route: 048
     Dates: start: 20110118

REACTIONS (1)
  - PSYCHOTIC DISORDER [None]
